FAERS Safety Report 7471532-7 (Version None)
Quarter: 2011Q2

REPORT INFORMATION
  Report Type: 
  Country: None (occurrence: None)
  Receive Date: 20110511
  Receipt Date: 20110426
  Transmission Date: 20111010
  Serious: Yes (Hospitalization, Disabling, Other)
  Sender: FDA-Public Use
  Company Number: US-ELI_LILLY_AND_COMPANY-US201103008096

PATIENT
  Sex: Female

DRUGS (13)
  1. FORTEO [Suspect]
     Indication: OSTEOPOROSIS
     Dosage: 20 UG, QD
     Dates: start: 20050901
  2. VASOTEC [Concomitant]
     Dosage: 20 MG, UNK
     Route: 065
  3. WARFARIN [Concomitant]
     Dosage: 1 UNK, UNK
  4. VITAMINS [Concomitant]
  5. VITAMIN D [Concomitant]
     Dosage: UNK, QD
  6. NORVASC [Concomitant]
     Dosage: 10 MG, UNK
     Route: 065
  7. EXTRA STRENGTH TYLENOL COUGH [Concomitant]
     Dosage: UNK, OTHER
  8. FORTEO [Suspect]
     Dosage: 20 UG, QD
     Dates: start: 20110401
  9. EFFEXOR [Concomitant]
     Dosage: 37.5 MG, UNK
  10. ASPIRIN [Concomitant]
     Dosage: 81 MG, UNK
  11. OSCAL [Concomitant]
  12. ZOCOR [Concomitant]
     Dosage: 10 MG, UNK
     Route: 065
  13. BENADRYL [Concomitant]
     Dosage: 25 MG, QD

REACTIONS (13)
  - COGNITIVE DISORDER [None]
  - ARTHRITIS [None]
  - ARTHROPATHY [None]
  - LOWER LIMB FRACTURE [None]
  - FALL [None]
  - POST PROCEDURAL COMPLICATION [None]
  - MUSCULOSKELETAL DISORDER [None]
  - BACK PAIN [None]
  - ATRIAL SEPTAL DEFECT [None]
  - JOINT INSTABILITY [None]
  - MOVEMENT DISORDER [None]
  - CEREBROVASCULAR ACCIDENT [None]
  - MOBILITY DECREASED [None]
